FAERS Safety Report 9423686 (Version 1)
Quarter: 2013Q3

REPORT INFORMATION
  Report Type: Spontaneous
  Country: GB (occurrence: GB)
  Receive Date: 20130727
  Receipt Date: 20130727
  Transmission Date: 20140515
  Serious: Yes (Hospitalization)
  Sender: FDA-Public Use
  Company Number: GB-009507513-1307GBR014679

PATIENT
  Age: 81 Year
  Sex: Female

DRUGS (6)
  1. SINGULAIR [Suspect]
     Indication: ASTHMA
     Dosage: 10 MG, 1/1DAYS
     Route: 048
     Dates: start: 20130625, end: 20130703
  2. WARFARIN SODIUM [Concomitant]
     Route: 048
  3. BENDROFLUMETHIAZIDE [Concomitant]
     Dosage: 2.5 MG, 1/1 DAYS
     Route: 048
  4. BUDESONIDE (+) FORMOTEROL FUMARATE [Concomitant]
     Route: 055
  5. IRBESARTAN [Concomitant]
     Dosage: 150 MG, 1/1 DYAS
     Route: 048
  6. SALBUTAMOL SANDOZ (ALBUTEROL SULFATE) [Concomitant]
     Dosage: 100 MICROGRAM, UNK
     Route: 048

REACTIONS (1)
  - Dyspnoea [Recovering/Resolving]
